FAERS Safety Report 5626313-3 (Version None)
Quarter: 2008Q1

REPORT INFORMATION
  Report Type: 
  Country: None (occurrence: None)
  Receive Date: 20080214
  Receipt Date: 20080204
  Transmission Date: 20080703
  Serious: Yes (Hospitalization, Other)
  Sender: FDA-Public Use
  Company Number: US-MERCK-0802USA01284

PATIENT
  Age: 58 Year
  Sex: Male

DRUGS (12)
  1. ZETIA [Suspect]
     Route: 065
  2. AMBIEN [Suspect]
     Route: 065
  3. TRAZODONE HYDROCHLORIDE [Suspect]
     Route: 065
  4. TOPROL-XL [Suspect]
     Route: 065
  5. WELLBUTRIN [Concomitant]
     Route: 065
  6. PAXIL [Concomitant]
     Route: 065
  7. ZOCOR [Concomitant]
     Route: 065
  8. HYZAAR [Concomitant]
     Route: 065
  9. ASPIRIN [Concomitant]
     Route: 065
  10. PROTONIX [Concomitant]
     Route: 065
  11. FOLIC ACID [Concomitant]
     Route: 065
  12. NITROGLYCERIN [Concomitant]
     Route: 065

REACTIONS (5)
  - BLOOD ALCOHOL INCREASED [None]
  - BLOOD CREATINE PHOSPHOKINASE INCREASED [None]
  - CHRONIC OBSTRUCTIVE PULMONARY DISEASE [None]
  - OVERDOSE [None]
  - URINE AMPHETAMINE POSITIVE [None]
